FAERS Safety Report 10943404 (Version 4)
Quarter: 2016Q2

REPORT INFORMATION
  Report Type: Spontaneous
  Country: US (occurrence: US)
  Receive Date: 20150322
  Receipt Date: 20160415
  Transmission Date: 20160815
  Serious: Yes (Other)
  Sender: FDA-Public Use
  Company Number: US-JNJFOC-20141114218

PATIENT
  Age: 14 Year
  Sex: Male

DRUGS (1)
  1. RISPERDAL [Suspect]
     Active Substance: RISPERIDONE
     Indication: PRODUCT USED FOR UNKNOWN INDICATION
     Route: 048
     Dates: start: 20020809, end: 20020926

REACTIONS (3)
  - Emotional disorder [Unknown]
  - Gynaecomastia [Recovered/Resolved]
  - Breast haematoma [Recovered/Resolved]

NARRATIVE: CASE EVENT DATE: 20080711
